FAERS Safety Report 5923590-6 (Version None)
Quarter: 2008Q3

REPORT INFORMATION
  Report Type: 
  Country: None (occurrence: None)
  Receive Date: 20080909
  Receipt Date: 20080428
  Transmission Date: 20090109
  Serious: Yes (Hospitalization)
  Sender: FDA-Public Use
  Company Number: 163-20785-08040150

PATIENT
  Age: 45 Year
  Sex: Male
  Weight: 106.6 kg

DRUGS (26)
  1. THALOMID [Suspect]
     Indication: MULTIPLE MYELOMA
     Dosage: 50 MG, QOD, ORAL ; ORAL ; ORAL
     Route: 048
     Dates: start: 20070130, end: 20080305
  2. THALOMID [Suspect]
     Indication: MULTIPLE MYELOMA
     Dosage: 50 MG, QOD, ORAL ; ORAL ; ORAL
     Route: 048
     Dates: start: 20051124
  3. VELCADE [Suspect]
     Indication: MULTIPLE MYELOMA
     Dosage: 1 MG/M2 ; 1 MG/M2 ; 1 MG/M2
     Dates: start: 20070130, end: 20080304
  4. VELCADE [Suspect]
     Indication: MULTIPLE MYELOMA
     Dosage: 1 MG/M2 ; 1 MG/M2 ; 1 MG/M2
     Dates: start: 20051119
  5. VELCADE [Suspect]
     Indication: MULTIPLE MYELOMA
     Dosage: 1 MG/M2 ; 1 MG/M2 ; 1 MG/M2
     Dates: start: 20080317
  6. DEXAMETHASONE TAB [Suspect]
     Indication: MULTIPLE MYELOMA
     Dosage: 12 MG, ORAL ; 40 MG, ORAL
     Route: 048
     Dates: start: 20070130, end: 20080304
  7. DEXAMETHASONE TAB [Suspect]
     Indication: MULTIPLE MYELOMA
     Dosage: 12 MG, ORAL ; 40 MG, ORAL
     Route: 048
     Dates: start: 20051124
  8. CISPLATIN [Suspect]
     Indication: MULTIPLE MYELOMA
     Dosage: 7.5 MG/M2 ; 10 MG/M2
     Dates: end: 20061104
  9. ADRIAMYCIN PFS [Suspect]
     Indication: MULTIPLE MYELOMA
     Dosage: 7.5 MG/M2 ; 10 MG/M2
     Dates: end: 20061104
  10. ADRIAMYCIN PFS [Suspect]
     Indication: MULTIPLE MYELOMA
     Dosage: 7.5 MG/M2 ; 10 MG/M2
     Dates: start: 20051124
  11. CYCLOPHOSPHAMIDE [Suspect]
     Indication: MULTIPLE MYELOMA
     Dosage: 300 MG/M2 ; 400 MG/M2
     Dates: end: 20061104
  12. CYCLOPHOSPHAMIDE [Suspect]
     Indication: MULTIPLE MYELOMA
     Dosage: 300 MG/M2 ; 400 MG/M2
     Dates: start: 20051124
  13. ETOPOSIDE [Suspect]
     Indication: MULTIPLE MYELOMA
     Dosage: 30 MG/M2 ; 40 MG/M2
     Dates: end: 20061104
  14. ETOPOSIDE [Suspect]
     Indication: MULTIPLE MYELOMA
     Dosage: 30 MG/M2 ; 40 MG/M2
     Dates: start: 20051124
  15. MELPHALAN (MELPHALAN) [Suspect]
     Indication: MULTIPLE MYELOMA
     Dosage: 200 MG/M2 ; 200 MG/M2
     Dates: start: 20060204, end: 20060204
  16. MELPHALAN (MELPHALAN) [Suspect]
     Indication: MULTIPLE MYELOMA
     Dosage: 200 MG/M2 ; 200 MG/M2
     Dates: start: 20060430, end: 20060430
  17. SYNTHROID (LEVOTHYROXINE SODIUM) (50 MICROGRAM, TABLETS) [Concomitant]
  18. ACYCLOVIR (ACICLOVIR) (40 MILLIGRAM, TABLETS) [Concomitant]
  19. FOLIC ACID (FOLIC ACID) (1 MILLIGRAM, TABLETS) [Concomitant]
  20. PROCRIT [Concomitant]
  21. PANTOPRAZOLE SODIUM [Concomitant]
  22. BACTRIM DS [Concomitant]
  23. HYDROXYZINE HCL [Concomitant]
  24. LYRICA            (PREGABLIN) (50 MILLIGRAM, CAPSULES) [Concomitant]
  25. LASIX [Concomitant]
  26. FLUTAMIDE [Concomitant]

REACTIONS (1)
  - PNEUMONIA [None]
